FAERS Safety Report 13687964 (Version 1)
Quarter: 2017Q2

REPORT INFORMATION
  Report Type: Spontaneous
  Country: US (occurrence: US)
  Receive Date: 20170626
  Receipt Date: 20170626
  Transmission Date: 20170830
  Serious: No
  Sender: FDA-Public Use
  Company Number: US-TEVA-743860USA

PATIENT
  Sex: Female

DRUGS (1)
  1. CHLORDIAZEPOXIDE. [Suspect]
     Active Substance: CHLORDIAZEPOXIDE
     Dosage: 25 MILLIGRAM DAILY;

REACTIONS (4)
  - Drug ineffective [Unknown]
  - Somnolence [Unknown]
  - Anxiety [Unknown]
  - Withdrawal syndrome [Unknown]
